FAERS Safety Report 12472091 (Version 1)
Quarter: 2016Q2

REPORT INFORMATION
  Report Type: Spontaneous
  Country: US (occurrence: None)
  Receive Date: 20160615
  Receipt Date: 20160615
  Transmission Date: 20160815
  Serious: Yes (Hospitalization)
  Sender: FDA-Public Use
  Company Number: None

PATIENT
  Age: 61 Year
  Sex: Male
  Weight: 59.9 kg

DRUGS (12)
  1. QUESTRAN [Concomitant]
     Active Substance: CHOLESTYRAMINE
  2. XIFAXAN [Concomitant]
     Active Substance: RIFAXIMIN
  3. SPIRONOLACTONE 25 MG [Suspect]
     Active Substance: SPIRONOLACTONE
     Indication: HYPERTENSION
     Dosage: CHRONIC
     Route: 048
  4. LASIX [Concomitant]
     Active Substance: FUROSEMIDE
  5. CHRONULAC [Concomitant]
     Active Substance: LACTULOSE
  6. NORVASC [Concomitant]
     Active Substance: AMLODIPINE BESYLATE
  7. OXYCODONE [Concomitant]
     Active Substance: OXYCODONE
  8. AMILORIDE 5 MG [Suspect]
     Active Substance: AMILORIDE
     Dosage: CHRONIC
     Route: 048
  9. CIPRO [Concomitant]
     Active Substance: CIPROFLOXACIN HYDROCHLORIDE
  10. COLACE [Concomitant]
     Active Substance: DOCUSATE SODIUM
  11. MVI [Concomitant]
     Active Substance: VITAMINS
  12. VITAMIN D2 [Concomitant]
     Active Substance: ERGOCALCIFEROL

REACTIONS (4)
  - Hyperkalaemia [None]
  - Drug interaction [None]
  - Hypophagia [None]
  - Acute kidney injury [None]

NARRATIVE: CASE EVENT DATE: 20151015
